FAERS Safety Report 6965993-7 (Version None)
Quarter: 2010Q3

REPORT INFORMATION
  Report Type: 
  Country: None (occurrence: None)
  Receive Date: 20100903
  Receipt Date: 20100826
  Transmission Date: 20110219
  Serious: No
  Sender: FDA-Public Use
  Company Number: US-PFIZER INC-2010108513

PATIENT
  Sex: Female

DRUGS (4)
  1. XALATAN [Suspect]
     Indication: MACULAR DEGENERATION
     Dosage: UNK, DAILY
     Route: 047
     Dates: start: 20100824
  2. XALATAN [Suspect]
     Indication: GLAUCOMA
  3. NIACIN [Concomitant]
     Dosage: UNK
  4. VITAMINS [Concomitant]
     Dosage: UNK

REACTIONS (2)
  - EYE PAIN [None]
  - PHOTOPHOBIA [None]
